FAERS Safety Report 6589090-8 (Version None)
Quarter: 2010Q1

REPORT INFORMATION
  Report Type: 
  Country: None (occurrence: None)
  Receive Date: 20100212
  Receipt Date: 20100126
  Transmission Date: 20100710
  Serious: Yes (Other)
  Sender: FDA-Public Use
  Company Number: 2010AL000669

PATIENT
  Age: 52 Year
  Sex: Female

DRUGS (4)
  1. METFORMIN HCL [Suspect]
     Indication: TYPE 2 DIABETES MELLITUS
     Dosage: 850 MG; TID;
  2. SIMVASTATIN [Concomitant]
  3. GLICLAZIDE [Concomitant]
  4. VICTOZA [Concomitant]

REACTIONS (2)
  - DIABETES MELLITUS INADEQUATE CONTROL [None]
  - PANCREATIC CARCINOMA [None]
